FAERS Safety Report 4505602-X (Version None)
Quarter: 2004Q4

REPORT INFORMATION
  Report Type: 
  Country: None (occurrence: None)
  Receive Date: 20041119
  Receipt Date: 20041026
  Transmission Date: 20050328
  Serious: No
  Sender: FDA-Public Use
  Company Number: US-GLAXOSMITHKLINE-A0531316A

PATIENT
  Age: 32 Year
  Sex: Female

DRUGS (1)
  1. LOTRONEX [Suspect]
     Indication: IRRITABLE BOWEL SYNDROME
     Dosage: 1MG SINGLE DOSE
     Route: 048
     Dates: start: 20041023, end: 20041023

REACTIONS (3)
  - AGITATION [None]
  - DISCOMFORT [None]
  - FEELING ABNORMAL [None]
